FAERS Safety Report 13523854 (Version 1)
Quarter: 2017Q2

REPORT INFORMATION
  Report Type: Spontaneous
  Country: US (occurrence: US)
  Receive Date: 20170508
  Receipt Date: 20170508
  Transmission Date: 20170830
  Serious: No
  Sender: FDA-Public Use
  Company Number: US-VIFOR (INTERNATIONAL) INC.-VIT-2017-04346

PATIENT
  Age: 78 Year
  Sex: Female

DRUGS (12)
  1. ACICLOVIR [Concomitant]
     Active Substance: ACYCLOVIR
  2. GLUCOSAMINE [Concomitant]
     Active Substance: GLUCOSAMINE
  3. SIMVASTATIN. [Concomitant]
     Active Substance: SIMVASTATIN
  4. VELTASSA [Suspect]
     Active Substance: PATIROMER
     Indication: HYPERKALAEMIA
     Route: 048
     Dates: start: 20161103
  5. RENVELA [Concomitant]
     Active Substance: SEVELAMER CARBONATE
  6. VELTASSA [Suspect]
     Active Substance: PATIROMER
     Route: 048
  7. MEGACE ORAL SUSPENSION [Concomitant]
  8. NORCO [Concomitant]
     Active Substance: ACETAMINOPHEN\HYDROCODONE BITARTRATE
  9. SODIUM BICARBONATE. [Concomitant]
     Active Substance: SODIUM BICARBONATE
  10. CIPROFLOXACIN. [Concomitant]
     Active Substance: CIPROFLOXACIN
  11. FUROSEMIDE. [Concomitant]
     Active Substance: FUROSEMIDE
  12. VITAMIN D3 [Concomitant]
     Active Substance: CHOLECALCIFEROL

REACTIONS (2)
  - Vomiting [Unknown]
  - Retching [Unknown]

NARRATIVE: CASE EVENT DATE: 201703
